FAERS Safety Report 17406175 (Version 1)
Quarter: 2020Q1

REPORT INFORMATION
  Report Type: Spontaneous
  Country: US (occurrence: US)
  Receive Date: 20200127
  Receipt Date: 20200127
  Transmission Date: 20200409
  Serious: Yes (Life-Threatening, Hospitalization, Disabling)
  Sender: FDA-Public Use
  Company Number: None

PATIENT
  Age: 66 Year
  Sex: Female
  Weight: 58.06 kg

DRUGS (8)
  1. VITAMIN B12 [Concomitant]
     Active Substance: CYANOCOBALAMIN
  2. VITAMIN C [Concomitant]
     Active Substance: ASCORBIC ACID
  3. INVEGA SUSTENNA [Suspect]
     Active Substance: PALIPERIDONE PALMITATE
     Indication: PRODUCT USED FOR UNKNOWN INDICATION
     Dates: start: 200911, end: 201908
  4. INVEGA [Concomitant]
     Active Substance: PALIPERIDONE
  5. LISINOPRIL. [Concomitant]
     Active Substance: LISINOPRIL
  6. MULTI VITAMIN IRON [Concomitant]
  7. PROBIOTIC [Concomitant]
     Active Substance: PROBIOTICS NOS
  8. FOLIC ACID. [Concomitant]
     Active Substance: FOLIC ACID

REACTIONS (6)
  - Vomiting [None]
  - Red blood cell count decreased [None]
  - Urinary incontinence [None]
  - Muscle fatigue [None]
  - Hypertension [None]
  - Muscular weakness [None]

NARRATIVE: CASE EVENT DATE: 2009
